FAERS Safety Report 8537865-8 (Version None)
Quarter: 2012Q3

REPORT INFORMATION
  Report Type: 
  Country: None (occurrence: None)
  Receive Date: 20120725
  Receipt Date: 20120716
  Transmission Date: 20120928
  Serious: Yes (Hospitalization)
  Sender: FDA-Public Use
  Company Number: US-GLAXOSMITHKLINE-A0799180A

PATIENT
  Age: 58 Year
  Sex: Male
  Weight: 112.3 kg

DRUGS (1)
  1. AVANDIA [Suspect]
     Indication: DIABETES MELLITUS
     Dosage: 4MG TWICE PER DAY
     Route: 048
     Dates: start: 19980101, end: 20030101

REACTIONS (2)
  - CARDIAC DISORDER [None]
  - CARDIAC FAILURE CONGESTIVE [None]
